FAERS Safety Report 10699864 (Version 2)
Quarter: 2014Q4

REPORT INFORMATION
  Report Type: Spontaneous
  Country: US (occurrence: US)
  Receive Date: 20141012
  Receipt Date: 20141012
  Transmission Date: 20150529
  Serious: Yes (Death)
  Sender: FDA-Public Use
  Company Number: US-APOTEX-2014AP003615

PATIENT
  Age: 45 Year
  Sex: Female

DRUGS (4)
  1. DIHYDROERGOTAMINE MESILATE [Suspect]
     Active Substance: DIHYDROERGOTAMINE MESYLATE
     Indication: PRODUCT USED FOR UNKNOWN INDICATION
     Route: 065
  2. HYDROCODONE [Suspect]
     Active Substance: HYDROCODONE
     Indication: HEAD INJURY
     Route: 065
  3. ESCITALOPRAM OXALATE. [Suspect]
     Active Substance: ESCITALOPRAM OXALATE
     Indication: DEPRESSION
     Dosage: 10 MG, DAILY
     Route: 065
  4. HYDROMORPHONE [Suspect]
     Active Substance: HYDROMORPHONE
     Indication: PRODUCT USED FOR UNKNOWN INDICATION
     Route: 065

REACTIONS (3)
  - Subarachnoid haemorrhage [Fatal]
  - Reversible cerebral vasoconstriction syndrome [Fatal]
  - Serotonin syndrome [Fatal]
